FAERS Safety Report 8011593-X (Version None)
Quarter: 2011Q4

REPORT INFORMATION
  Report Type: 
  Country: None (occurrence: None)
  Receive Date: 20111228
  Receipt Date: 20111214
  Transmission Date: 20120403
  Serious: Yes (Death, Other)
  Sender: FDA-Public Use
  Company Number: NL-ROCHE-1022758

PATIENT

DRUGS (3)
  1. AVASTIN [Suspect]
     Indication: BREAST CANCER
  2. XELODA [Suspect]
     Indication: BREAST CANCER
  3. PACLITAXEL [Suspect]
     Indication: BREAST CANCER

REACTIONS (11)
  - LEUKOPENIA [None]
  - HAEMORRHAGE [None]
  - THROMBOSIS [None]
  - DEATH [None]
  - HYPERTENSION [None]
  - PULMONARY EMBOLISM [None]
  - PALMAR-PLANTAR ERYTHRODYSAESTHESIA SYNDROME [None]
  - NEUROPATHY PERIPHERAL [None]
  - PROTEINURIA [None]
  - FATIGUE [None]
  - NEUTROPENIA [None]
